FAERS Safety Report 8374567-5 (Version None)
Quarter: 2012Q2

REPORT INFORMATION
  Report Type: 
  Country: None (occurrence: None)
  Receive Date: 20120521
  Receipt Date: 20120508
  Transmission Date: 20120825
  Serious: Yes (Congenital Anomaly)
  Sender: FDA-Public Use
  Company Number: CH-TEVA-338101ISR

PATIENT

DRUGS (8)
  1. ACETAMINOPHEN [Suspect]
     Dates: start: 20111217
  2. ACETYLCYSTEINE [Suspect]
     Dates: start: 20111217, end: 20111219
  3. DIPYRONE TAB [Suspect]
     Dates: start: 20111217, end: 20111220
  4. VOLTAREN [Suspect]
     Dates: start: 20111217, end: 20111201
  5. SYMBICORT [Suspect]
     Dates: start: 20111217, end: 20111218
  6. MYDOCALM [Suspect]
     Dates: start: 20111217, end: 20111221
  7. RESYL PLUS [Suspect]
     Dates: start: 20111217, end: 20111219
  8. IBUPROFEN TABLETS [Suspect]
     Dates: start: 20111217

REACTIONS (1)
  - TRISOMY 21 [None]
